FAERS Safety Report 14841160 (Version 1)
Quarter: 2018Q2

REPORT INFORMATION
  Report Type: Spontaneous
  Country: US (occurrence: US)
  Receive Date: 20180503
  Receipt Date: 20180503
  Transmission Date: 20180711
  Serious: Yes (Other)
  Sender: FDA-Public Use
  Company Number: US-BAYER-2018-083054

PATIENT
  Weight: 2.3 kg

DRUGS (7)
  1. PHENYLEPHRINE [Concomitant]
     Active Substance: PHENYLEPHRINE\PHENYLEPHRINE HYDROCHLORIDE
     Route: 064
  2. AMPICILLIN [Concomitant]
     Active Substance: AMPICILLIN
     Route: 064
  3. FENTANYL. [Concomitant]
     Active Substance: FENTANYL
     Route: 064
  4. ACETYLSALICYLIC ACID({=100 MG) [Suspect]
     Active Substance: ASPIRIN
     Indication: POLYCYTHAEMIA
     Dosage: 81 MG, UNK
     Route: 064
  5. METOPROLOL. [Concomitant]
     Active Substance: METOPROLOL
     Route: 064
  6. OXYGEN. [Concomitant]
     Active Substance: OXYGEN
     Route: 064
  7. BUVACAINA [Concomitant]
     Route: 064

REACTIONS (4)
  - Low birth weight baby [None]
  - Foetal heart rate deceleration abnormality [Recovered/Resolved]
  - Foetal exposure during pregnancy [None]
  - Foetal growth restriction [None]
